FAERS Safety Report 14939902 (Version 1)
Quarter: 2018Q2

REPORT INFORMATION
  Report Type: Spontaneous
  Country: US (occurrence: US)
  Receive Date: 20180525
  Receipt Date: 20180525
  Transmission Date: 20180711
  Serious: No
  Sender: FDA-Public Use
  Company Number: US-SA-2018SA136699

PATIENT
  Sex: Female

DRUGS (2)
  1. ASPERCREME WITH LIDOCAINE [Suspect]
     Active Substance: LIDOCAINE
     Indication: HERPES ZOSTER
  2. ASPERCREME MAX NO MESS ROLL ON [Suspect]
     Active Substance: MENTHOL
     Indication: HERPES ZOSTER
     Dosage: UNK UNK,UNK
     Route: 065

REACTIONS (1)
  - Drug ineffective [Unknown]
